FAERS Safety Report 4541050-4 (Version None)
Quarter: 2004Q4

REPORT INFORMATION
  Report Type: 
  Country: None (occurrence: None)
  Receive Date: 20041228
  Receipt Date: 20041217
  Transmission Date: 20050328
  Serious: Yes (Death, Hospitalization)
  Sender: FDA-Public Use
  Company Number: WAES 0412FIN00009

PATIENT
  Age: 86 Year
  Sex: Female

DRUGS (13)
  1. TAB ETORICOXIB 60 MG [Suspect]
     Indication: ARTHRALGIA
     Dosage: 60 MG/DAILY/PO
     Route: 048
     Dates: start: 20041008, end: 20041101
  2. VIOXX [Suspect]
     Indication: ARTHRALGIA
     Dosage: PO
     Route: 048
     Dates: end: 20041001
  3. ASPIRIN [Suspect]
     Indication: CEREBROVASCULAR ACCIDENT PROPHYLAXIS
     Dosage: 100 MG/DAILY/PO
     Route: 048
  4. ASPIRIN [Suspect]
     Indication: CORONARY ARTERY DISEASE
     Dosage: 100 MG/DAILY/PO
     Route: 048
  5. ZOCOR [Concomitant]
  6. ACETAMINOPHEN [Concomitant]
  7. ALLOPURINOL [Concomitant]
  8. CLOPIDOGREL BISULFATE [Concomitant]
  9. ENALAPRIL MALEATE [Concomitant]
  10. FUROSEMIDE [Concomitant]
  11. GALANTAMINE HYDROBROMIDE [Concomitant]
  12. ISOSORBIDE MONONITRATE [Concomitant]
  13. METOPROLOL [Concomitant]

REACTIONS (3)
  - DUODENAL ULCER PERFORATION [None]
  - MYOCARDIAL INFARCTION [None]
  - PNEUMONIA ASPIRATION [None]
